FAERS Safety Report 21718971 (Version 1)
Quarter: 2022Q4

REPORT INFORMATION
  Report Type: Spontaneous
  Country: US (occurrence: US)
  Receive Date: 20221213
  Receipt Date: 20221213
  Transmission Date: 20230113
  Serious: Yes (Other)
  Sender: FDA-Public Use
  Company Number: US-STRIDES ARCOLAB LIMITED-2022SP014501

PATIENT
  Age: 40 Year
  Sex: Male

DRUGS (16)
  1. AZATHIOPRINE [Suspect]
     Active Substance: AZATHIOPRINE
     Indication: Anti-neutrophil cytoplasmic antibody positive vasculitis
     Dosage: 150 MILLIGRAM/DAY
     Route: 065
     Dates: start: 201505, end: 2015
  2. AZATHIOPRINE [Suspect]
     Active Substance: AZATHIOPRINE
     Indication: Granulomatosis with polyangiitis
  3. METHOTREXATE [Suspect]
     Active Substance: METHOTREXATE
     Indication: Anti-neutrophil cytoplasmic antibody positive vasculitis
     Dosage: UNK
     Route: 065
     Dates: start: 201511
  4. METHOTREXATE [Suspect]
     Active Substance: METHOTREXATE
     Indication: Granulomatosis with polyangiitis
  5. MYCOPHENOLATE MOFETIL [Suspect]
     Active Substance: MYCOPHENOLATE MOFETIL
     Indication: Anti-neutrophil cytoplasmic antibody positive vasculitis
     Dosage: 3000 MILLIGRAM/ DAY
     Route: 065
     Dates: start: 201804
  6. MYCOPHENOLATE MOFETIL [Suspect]
     Active Substance: MYCOPHENOLATE MOFETIL
     Indication: Granulomatosis with polyangiitis
  7. PREDNISOLONE [Suspect]
     Active Substance: PREDNISOLONE
     Indication: Anti-neutrophil cytoplasmic antibody positive vasculitis
     Dosage: 70 MILLIGRAM/DAY
     Route: 065
     Dates: start: 201407
  8. PREDNISOLONE [Suspect]
     Active Substance: PREDNISOLONE
     Indication: Granulomatosis with polyangiitis
     Dosage: UNK (INCREASE IN PREDNISONE DOSE. )
     Route: 065
  9. PREDNISOLONE [Suspect]
     Active Substance: PREDNISOLONE
     Dosage: UNK
     Route: 065
  10. CYCLOPHOSPHAMIDE [Suspect]
     Active Substance: CYCLOPHOSPHAMIDE
     Indication: Anti-neutrophil cytoplasmic antibody positive vasculitis
     Dosage: UNK
     Route: 042
     Dates: start: 201501, end: 2015
  11. CYCLOPHOSPHAMIDE [Suspect]
     Active Substance: CYCLOPHOSPHAMIDE
     Indication: Granulomatosis with polyangiitis
     Dosage: UNK(RE-INITATED)
     Route: 065
     Dates: start: 201711
  12. ABATACEPT [Suspect]
     Active Substance: ABATACEPT
     Indication: Anti-neutrophil cytoplasmic antibody positive vasculitis
     Dosage: 750 MILLIGRAM, MONTHLY
     Route: 042
     Dates: start: 201906
  13. ABATACEPT [Suspect]
     Active Substance: ABATACEPT
     Indication: Granulomatosis with polyangiitis
  14. RITUXIMAB [Suspect]
     Active Substance: RITUXIMAB
     Indication: Anti-neutrophil cytoplasmic antibody positive vasculitis
     Dosage: UNK
     Route: 065
     Dates: start: 201407
  15. RITUXIMAB [Suspect]
     Active Substance: RITUXIMAB
     Indication: Granulomatosis with polyangiitis
     Dosage: UNK (INFUSION)
     Route: 065
     Dates: start: 201501
  16. RITUXIMAB [Suspect]
     Active Substance: RITUXIMAB
     Dosage: UNK(INFUSION)
     Route: 065
     Dates: start: 201803

REACTIONS (2)
  - Drug ineffective [Unknown]
  - Off label use [Unknown]
